FAERS Safety Report 5989337-2 (Version None)
Quarter: 2008Q4

REPORT INFORMATION
  Report Type: 
  Country: None (occurrence: None)
  Receive Date: 20081210
  Receipt Date: 20081128
  Transmission Date: 20090506
  Serious: Yes (Death)
  Sender: FDA-Public Use
  Company Number: JP-PFIZER INC-2008151039

PATIENT

DRUGS (1)
  1. ZYVOX [Suspect]
     Route: 048

REACTIONS (1)
  - PLATELET COUNT DECREASED [None]
